FAERS Safety Report 7034797-1 (Version None)
Quarter: 2010Q4

REPORT INFORMATION
  Report Type: 
  Country: None (occurrence: None)
  Receive Date: 20101008
  Receipt Date: 20101005
  Transmission Date: 20110411
  Serious: Yes (Death, Other)
  Sender: FDA-Public Use
  Company Number: PHHY2010JP59421

PATIENT
  Sex: Female
  Weight: 34 kg

DRUGS (2)
  1. ALISKIREN/AMOLODIPINE BESYLATE/HYDROCHLOROTHIAZIDE [Suspect]
     Dosage: 150 MG, QD
     Route: 048
     Dates: start: 20100108
  2. OLMETEC [Concomitant]
     Indication: HYPERTENSION
     Dosage: 5 MG
     Route: 048
     Dates: start: 20091224, end: 20100107

REACTIONS (2)
  - BLOOD PRESSURE SYSTOLIC INCREASED [None]
  - MULTIPLE MYELOMA [None]
